FAERS Safety Report 13790737 (Version 1)
Quarter: 2017Q3

REPORT INFORMATION
  Report Type: Spontaneous
  Country: US (occurrence: US)
  Receive Date: 20170725
  Receipt Date: 20170725
  Transmission Date: 20171127
  Serious: No
  Sender: FDA-Public Use
  Company Number: US-GALDERMA-US17003008

PATIENT
  Age: 33 Year
  Sex: Female

DRUGS (3)
  1. DIFFERIN GEL [Suspect]
     Active Substance: ADAPALENE
     Indication: ACNE
     Dosage: 0,1%
     Route: 061
     Dates: start: 20170325, end: 20170420
  2. CETAPHIL MOISTURIZING LOTION (DIFFERIN BALANCING MOISTURIZER) [Suspect]
     Active Substance: COSMETICS
     Indication: ACNE
     Route: 061
     Dates: start: 20170325, end: 20170420
  3. CETAPHIL GENTLE SKIN CLEANSER (DIFFERIN BALANCING CLEANSER) [Suspect]
     Active Substance: COSMETICS
     Indication: ACNE
     Route: 061
     Dates: start: 20170325, end: 20170420

REACTIONS (1)
  - Skin hyperpigmentation [Not Recovered/Not Resolved]

NARRATIVE: CASE EVENT DATE: 20170413
